FAERS Safety Report 5741935-7 (Version None)
Quarter: 2008Q2

REPORT INFORMATION
  Report Type: 
  Country: None (occurrence: None)
  Receive Date: 20080519
  Receipt Date: 20070703
  Transmission Date: 20081010
  Serious: No
  Sender: FDA-Public Use
  Company Number: US-KINGPHARMUSA00001-K200700848

PATIENT

DRUGS (3)
  1. TAPAZOLE [Suspect]
     Indication: HYPERTHYROIDISM
     Dosage: 10 MG, QD
     Route: 048
     Dates: start: 20070530, end: 20070616
  2. TAPAZOLE [Suspect]
     Dosage: 15 MG, QD
     Route: 048
     Dates: start: 20070616, end: 20070801
  3. TAPAZOLE [Suspect]
     Dosage: 20 MG, QD
     Route: 048
     Dates: start: 20070801

REACTIONS (8)
  - DIZZINESS [None]
  - FEELING HOT [None]
  - HEADACHE [None]
  - HYPOAESTHESIA [None]
  - MYALGIA [None]
  - PARAESTHESIA [None]
  - PRURITUS [None]
  - URTICARIA [None]
